FAERS Safety Report 9487126 (Version 1)
Quarter: 2013Q3

REPORT INFORMATION
  Report Type: Spontaneous
  Country: US (occurrence: GB)
  Receive Date: 20130829
  Receipt Date: 20130829
  Transmission Date: 20140515
  Serious: Yes (Other)
  Sender: FDA-Public Use
  Company Number: US-WATSON-2013-15452

PATIENT
  Age: 1 Day
  Sex: Male

DRUGS (1)
  1. FENTANYL (UNKNOWN) [Suspect]
     Indication: PAIN
     Dosage: 62.5 MCG/HR, UNKNOWN
     Route: 064

REACTIONS (8)
  - Hypertonia [Unknown]
  - Crying [Unknown]
  - Agitation [Unknown]
  - Insomnia [Unknown]
  - Reflexes abnormal [Unknown]
  - Tremor [Unknown]
  - Drug withdrawal syndrome neonatal [Unknown]
  - Drug withdrawal syndrome neonatal [Unknown]
